FAERS Safety Report 6153760-6 (Version None)
Quarter: 2009Q2

REPORT INFORMATION
  Report Type: 
  Country: None (occurrence: None)
  Receive Date: 20090410
  Receipt Date: 20090210
  Transmission Date: 20091009
  Serious: Yes (Other)
  Sender: FDA-Public Use
  Company Number: 2009US000375

PATIENT
  Age: 75 Year

DRUGS (15)
  1. LEXISCAN [Suspect]
     Indication: SCAN MYOCARDIAL PERFUSION
     Dates: start: 20090210, end: 20090210
  2. ASPIRIN [Concomitant]
  3. CALCIUM (ASCORBIC ACID) [Concomitant]
  4. D3 [Concomitant]
  5. PLAVIX [Concomitant]
  6. ARICEPT [Concomitant]
  7. LOVENOX [Concomitant]
  8. HYDROCHLOROTHIAZIDE [Concomitant]
  9. SYNTHROID [Concomitant]
  10. LIDODERM [Concomitant]
  11. LOPRESSOR [Concomitant]
  12. REMERON [Concomitant]
  13. NAPROXEN [Concomitant]
  14. ZOCOR [Concomitant]
  15. DIOVAN [Concomitant]

REACTIONS (3)
  - ELECTROCARDIOGRAM QT PROLONGED [None]
  - NAUSEA [None]
  - VOMITING [None]
